FAERS Safety Report 13581930 (Version 1)
Quarter: 2017Q2

REPORT INFORMATION
  Report Type: Spontaneous
  Country: ES (occurrence: ES)
  Receive Date: 20170525
  Receipt Date: 20170525
  Transmission Date: 20170830
  Serious: Yes (Hospitalization)
  Sender: FDA-Public Use
  Company Number: ES-PFIZER INC-2017226089

PATIENT
  Age: 64 Year
  Sex: Male
  Weight: 88 kg

DRUGS (4)
  1. PREVENCOR [Suspect]
     Active Substance: ATORVASTATIN CALCIUM
     Indication: HYPERCHOLESTEROLAEMIA
     Dosage: 10 MG, 1X/DAY
     Dates: start: 20100315
  2. AMARYL [Suspect]
     Active Substance: GLIMEPIRIDE
     Indication: DIABETES MELLITUS
     Dosage: 4 MG, 1X/DAY
     Dates: start: 20100315
  3. ENEAS [Suspect]
     Active Substance: ENALAPRIL MALEATE\NITRENDIPINE
     Indication: HYPERTENSION
     Dosage: 1 DF, 1X/DAY
     Dates: start: 201003
  4. EFFICIB [Concomitant]
     Active Substance: METFORMIN HYDROCHLORIDE\SITAGLIPTIN PHOSPHATE
     Indication: DIABETES MELLITUS
     Dosage: 1 DF, 2 SEPARATE DOSES, INTERVAL NUMBER = 1, DAYS
     Dates: start: 20100315

REACTIONS (4)
  - Petechiae [Recovered/Resolved]
  - Thrombocytopenia [Recovered/Resolved]
  - Thrombocytopenic purpura [Recovered/Resolved]
  - Epistaxis [Recovered/Resolved]

NARRATIVE: CASE EVENT DATE: 20170420
